FAERS Safety Report 11284616 (Version 1)
Quarter: 2015Q3

REPORT INFORMATION
  Report Type: Spontaneous
  Country: US (occurrence: US)
  Receive Date: 20150720
  Receipt Date: 20150720
  Transmission Date: 20151125
  Serious: No
  Sender: FDA-Public Use
  Company Number: US-BAUSCH-BL-2015-004129

PATIENT
  Age: 76 Year
  Sex: Female

DRUGS (1)
  1. LACRISERT [Suspect]
     Active Substance: HYDROXYPROPYL CELLULOSE
     Indication: EYE DISORDER
     Route: 047
     Dates: end: 20150302

REACTIONS (2)
  - Eye swelling [Unknown]
  - Ocular discomfort [Unknown]
